FAERS Safety Report 13540572 (Version 1)
Quarter: 2017Q2

REPORT INFORMATION
  Report Type: Spontaneous
  Country: SK (occurrence: SK)
  Receive Date: 20170512
  Receipt Date: 20170512
  Transmission Date: 20170830
  Serious: Yes (Death, Life-Threatening, Hospitalization, Other)
  Sender: FDA-Public Use
  Company Number: SK-CELGENEUS-SVK-20170409846

PATIENT
  Age: 71 Year
  Sex: Male

DRUGS (1)
  1. AZACITIDINE INJECTABLE [Suspect]
     Active Substance: AZACITIDINE
     Indication: ACUTE MYELOID LEUKAEMIA
     Route: 058

REACTIONS (15)
  - Hypercreatinaemia [Unknown]
  - Renal failure [Unknown]
  - Cardiovascular disorder [Unknown]
  - Circulatory collapse [Unknown]
  - Rash [Recovered/Resolved]
  - Haemoptysis [Unknown]
  - Leukocytosis [Unknown]
  - Bronchopulmonary aspergillosis [Unknown]
  - Thrombocytopenia [Unknown]
  - Acute myeloid leukaemia [Fatal]
  - Sepsis [Unknown]
  - Hyperleukocytosis [Unknown]
  - Hyperuricaemia [Unknown]
  - Asthenia [Unknown]
  - Pancytopenia [Unknown]
